FAERS Safety Report 5194459-2 (Version None)
Quarter: 2006Q4

REPORT INFORMATION
  Report Type: 
  Country: None (occurrence: None)
  Receive Date: 20061222
  Receipt Date: 20061215
  Transmission Date: 20070319
  Serious: Yes (Hospitalization)
  Sender: FDA-Public Use
  Company Number: 233968

PATIENT
  Age: 62 Year
  Sex: Female

DRUGS (8)
  1. BEVACIZUMAB (BEVACIZUMAB) PWDR + SOLVENT, INFUSION SOLN, 100MG [Suspect]
     Indication: BREAST CANCER METASTATIC
     Dosage: 10 MG/KG, INTRAVENOUS
     Route: 042
     Dates: start: 20060531
  2. PACLITAXEL [Suspect]
     Indication: BREAST CANCER METASTATIC
     Dosage: 90 MG/M2, INTRAVENOUS
     Route: 042
     Dates: start: 20060531
  3. RAMIPRIL [Concomitant]
  4. VICODIN [Concomitant]
  5. MULTI-VITAMIN SUPPLEMENT (MULTIVITAMINS NOS) [Concomitant]
  6. OS-CAL (CALCIUM CARBONATE) [Concomitant]
  7. DURAGESIC-100 [Concomitant]
  8. MACROBID [Concomitant]

REACTIONS (11)
  - ASTHENIA [None]
  - BLOOD ALKALINE PHOSPHATASE INCREASED [None]
  - DEHYDRATION [None]
  - ESCHERICHIA BACTERAEMIA [None]
  - FALL [None]
  - HAEMOGLOBIN DECREASED [None]
  - HEAD INJURY [None]
  - RENAL FAILURE [None]
  - SEPSIS SYNDROME [None]
  - SYNCOPE [None]
  - URINARY TRACT INFECTION [None]
